FAERS Safety Report 9460051 (Version 3)
Quarter: 2013Q4

REPORT INFORMATION
  Report Type: Report from Study
  Country: FR (occurrence: FR)
  Receive Date: 20130815
  Receipt Date: 20131022
  Transmission Date: 20140711
  Serious: Yes (Hospitalization)
  Sender: FDA-Public Use
  Company Number: FR-ROCHE-1258595

PATIENT
  Age: 63 Year
  Sex: Male
  Weight: 90 kg

DRUGS (17)
  1. DCDT2980S (ANTI-CD22-VC-MMAE) [Suspect]
     Indication: B-CELL LYMPHOMA
     Dosage: LAST DOSE PRIOR TO SAE: 16/JUL/2013. THERAPY INTERRUPTED.
     Route: 042
     Dates: start: 20130625
  2. RITUXIMAB [Suspect]
     Indication: B-CELL LYMPHOMA
     Dosage: LAST DOSE PRIOR TO SAE: 15/JUL/2013, DOSE 750MG. THERAPY INTERRUPTED.
     Route: 042
     Dates: start: 20130624
  3. CARDENSIEL [Concomitant]
     Indication: ATRIAL FIBRILLATION
     Route: 048
  4. CORDARONE [Concomitant]
     Indication: ATRIAL FIBRILLATION
     Route: 048
  5. VENTOLINE [Concomitant]
     Indication: BRONCHITIS
     Route: 055
     Dates: start: 20130701, end: 20130714
  6. KALEORID [Concomitant]
     Indication: HYPOKALAEMIA
     Route: 048
     Dates: start: 20130701
  7. AUGMENTIN [Concomitant]
     Indication: BRONCHITIS
     Route: 048
     Dates: start: 20130701, end: 20130707
  8. AUGMENTIN [Concomitant]
     Route: 048
     Dates: start: 20130724, end: 20130731
  9. GRANOCYTE 34 [Concomitant]
     Indication: NEUTROPENIA
     Route: 058
     Dates: start: 20130708, end: 20130714
  10. TRAMADOL [Concomitant]
     Indication: BONE PAIN
     Route: 048
     Dates: start: 20130707
  11. SKENAN [Concomitant]
     Indication: BONE PAIN
     Route: 048
     Dates: start: 20130707, end: 20130708
  12. SKENAN [Concomitant]
     Route: 048
     Dates: start: 20130801, end: 20130806
  13. SEVREDOL [Concomitant]
     Indication: BONE PAIN
     Route: 048
     Dates: start: 20130707, end: 20130714
  14. NEUPOGEN [Concomitant]
     Indication: NEUTROPENIA
     Route: 058
     Dates: start: 20130725, end: 20130801
  15. NEUPOGEN [Concomitant]
     Route: 058
     Dates: start: 20130814, end: 20130817
  16. UVEDOSE [Concomitant]
     Indication: VITAMIN SUPPLEMENTATION
     Route: 048
     Dates: start: 20130801
  17. ACTISKENAN [Concomitant]
     Indication: BONE PAIN
     Route: 048
     Dates: start: 20130801, end: 20130806

REACTIONS (1)
  - Thrombocytopenia [Recovered/Resolved]
